FAERS Safety Report 25260253 (Version 1)
Quarter: 2025Q2

REPORT INFORMATION
  Report Type: Spontaneous
  Country: CN (occurrence: CN)
  Receive Date: 20250501
  Receipt Date: 20250501
  Transmission Date: 20250717
  Serious: Yes (Other)
  Sender: TAKEDA
  Company Number: CN-HUTCHMED LIMITED-HMP2025CN01086

PATIENT
  Age: 68 Year
  Sex: Male

DRUGS (4)
  1. FRUQUINTINIB [Suspect]
     Active Substance: FRUQUINTINIB
     Indication: Oesophageal carcinoma
     Dosage: 5 MILLIGRAM, QD
     Dates: start: 20250416, end: 20250416
  2. CAMRELIZUMAB [Concomitant]
     Active Substance: CAMRELIZUMAB
     Indication: Oesophageal carcinoma
     Dosage: 200 MILLIGRAM, QD
     Dates: start: 20250416, end: 20250416
  3. NEDAPLATIN [Concomitant]
     Active Substance: NEDAPLATIN
     Indication: Oesophageal carcinoma
     Dosage: 140 MILLIGRAM, QD
     Dates: start: 20250416, end: 20250416
  4. PACLITAXEL [Concomitant]
     Active Substance: PACLITAXEL
     Indication: Oesophageal carcinoma
     Dosage: 240 MILLIGRAM, QD
     Dates: start: 20250416, end: 20250416

REACTIONS (2)
  - Myelosuppression [Unknown]
  - Product use in unapproved indication [Unknown]

NARRATIVE: CASE EVENT DATE: 20250416
